FAERS Safety Report 12842103 (Version 2)
Quarter: 2016Q4

REPORT INFORMATION
  Report Type: Report from Study
  Country: NL (occurrence: NL)
  Receive Date: 20161013
  Receipt Date: 20161123
  Transmission Date: 20170207
  Serious: Yes (Other)
  Sender: FDA-Public Use
  Company Number: NL-AMGEN-NLDSL2016138197

PATIENT
  Age: 69 Year
  Sex: Female

DRUGS (1)
  1. XGEVA [Suspect]
     Active Substance: DENOSUMAB
     Indication: PROPHYLAXIS
     Dosage: 1.7 ML,(120 MG), Q4WK
     Route: 058

REACTIONS (2)
  - Diabetes mellitus [Unknown]
  - Limb injury [Unknown]

NARRATIVE: CASE EVENT DATE: 20161004
